FAERS Safety Report 8910754 (Version 2)
Quarter: 2012Q4

REPORT INFORMATION
  Report Type: 
  Country: FR (occurrence: FR)
  Receive Date: 20121116
  Receipt Date: 20121123
  Transmission Date: 20130627
  Serious: Yes (Other)
  Sender: FDA-Public Use
  Company Number: FR-PFIZER INC-2012283877

PATIENT
  Age: 81 Year
  Sex: Female

DRUGS (10)
  1. LYRICA [Suspect]
     Indication: PAIN OF LOWER EXTREMITIES
     Dosage: 100 mg, 2x/day in morning and evening
     Dates: end: 201208
  2. LYRICA [Suspect]
     Indication: NEUROPATHIC PAIN
  3. KARDEGIC 75 [Concomitant]
     Dosage: UNK
  4. PERINDOPRIL [Concomitant]
     Dosage: 4 mg
  5. HYPERIUM [Concomitant]
     Dosage: 1 mg
  6. TAHOR 10 [Concomitant]
     Dosage: UNK
  7. CALCIDOSE D3 [Concomitant]
     Dosage: UNK
  8. IMOVANE [Concomitant]
     Dosage: UNK
  9. IXPRIM [Concomitant]
     Dosage: UNK
  10. INEXIUM 40 [Concomitant]
     Dosage: UNK

REACTIONS (3)
  - Generalised oedema [Recovering/Resolving]
  - Weight decreased [Unknown]
  - Oedema peripheral [Unknown]
